FAERS Safety Report 21218209 (Version 1)
Quarter: 2022Q3

REPORT INFORMATION
  Report Type: Spontaneous
  Country: US (occurrence: None)
  Receive Date: 20220816
  Receipt Date: 20220816
  Transmission Date: 20221026
  Serious: Yes (Hospitalization)
  Sender: FDA-Public Use
  Company Number: None

PATIENT
  Age: 71 Year
  Sex: Male
  Weight: 67.6 kg

DRUGS (1)
  1. CISPLATIN [Suspect]
     Active Substance: CISPLATIN
     Dates: end: 20220804

REACTIONS (7)
  - Chills [None]
  - Fatigue [None]
  - Body temperature increased [None]
  - Neutropenia [None]
  - Thrombocytopenia [None]
  - Pneumonia [None]
  - Procalcitonin increased [None]

NARRATIVE: CASE EVENT DATE: 20220811
